FAERS Safety Report 20322220 (Version 3)
Quarter: 2022Q3

REPORT INFORMATION
  Report Type: Spontaneous
  Country: CA (occurrence: CA)
  Receive Date: 20220111
  Receipt Date: 20220712
  Transmission Date: 20221026
  Serious: Yes (Other)
  Sender: FDA-Public Use
  Company Number: CA-GLAXOSMITHKLINE-CA2021246176

PATIENT

DRUGS (5)
  1. ZEJULA [Suspect]
     Active Substance: NIRAPARIB
     Indication: Ovarian epithelial cancer
     Dosage: 200 MG, QD
     Dates: start: 20210205
  2. ZEJULA [Suspect]
     Active Substance: NIRAPARIB
     Indication: Fallopian tube cancer
     Dosage: 100 MG, QD
  3. ZEJULA [Suspect]
     Active Substance: NIRAPARIB
     Indication: Malignant peritoneal neoplasm
     Dosage: 150 MG, QD
  4. ZEJULA [Suspect]
     Active Substance: NIRAPARIB
     Dosage: UNK (200 MG FOR 3 DAYS AND 100 MG FOR 4 DAYS)
  5. ZEJULA [Suspect]
     Active Substance: NIRAPARIB
     Dosage: UNK, INITIALLY 200MG/DAY, THAN 100MG/DAY, THAN INCREASED TO 150MG/DAY

REACTIONS (4)
  - Malignant neoplasm progression [Unknown]
  - Tumour marker increased [Unknown]
  - Carbohydrate antigen 125 increased [Unknown]
  - Product use issue [Unknown]

NARRATIVE: CASE EVENT DATE: 20220105
